FAERS Safety Report 9039003 (Version 1)
Quarter: 2013Q1

REPORT INFORMATION
  Report Type: Spontaneous
  Country: US (occurrence: None)
  Receive Date: 20130123
  Receipt Date: 20130123
  Transmission Date: 20140127
  Serious: Yes (Other)
  Sender: FDA-Public Use
  Company Number: None

PATIENT
  Age: 42 Year
  Sex: Female
  Weight: 53.52 kg

DRUGS (2)
  1. PLAN B ONE-STEP [Suspect]
     Indication: DEVICE BREAKAGE
     Route: 048
  2. FERAHEME [Concomitant]

REACTIONS (2)
  - Acne cystic [None]
  - Menopausal symptoms [None]
